FAERS Safety Report 4519665-9 (Version None)
Quarter: 2004Q4

REPORT INFORMATION
  Report Type: 
  Country: None (occurrence: None)
  Receive Date: 20041206
  Receipt Date: 20041116
  Transmission Date: 20050328
  Serious: Yes (Hospitalization)
  Sender: FDA-Public Use
  Company Number: PHBS2004IT15612

PATIENT
  Age: 59 Year
  Sex: Male

DRUGS (1)
  1. PRIMESIN [Suspect]
     Indication: LOW DENSITY LIPOPROTEIN INCREASED
     Dosage: 80 MG, QD
     Route: 048
     Dates: start: 20041111, end: 20041111

REACTIONS (2)
  - DERMATITIS ALLERGIC [None]
  - HYPOTENSION [None]
